FAERS Safety Report 13832032 (Version 1)
Quarter: 2017Q3

REPORT INFORMATION
  Report Type: Spontaneous
  Country: US (occurrence: US)
  Receive Date: 20170803
  Receipt Date: 20170803
  Transmission Date: 20171127
  Serious: No
  Sender: FDA-Public Use
  Company Number: US-ROCHE-693948

PATIENT
  Age: 83 Year
  Sex: Female
  Weight: 67.1 kg

DRUGS (3)
  1. BONIVA [Suspect]
     Active Substance: IBANDRONATE SODIUM
     Indication: BONE LOSS
     Route: 048
  2. ASPIRIN. [Concomitant]
     Active Substance: ASPIRIN
     Dosage: DRUG NAME: BABY ASPIRIN
     Route: 065
  3. CENTRUM [Concomitant]
     Active Substance: VITAMINS
     Dosage: CENTRUM VITAMIN
     Route: 065

REACTIONS (7)
  - Somnolence [Unknown]
  - Abdominal pain upper [Unknown]
  - Pain [Unknown]
  - Decreased appetite [Unknown]
  - Peripheral swelling [Unknown]
  - Diarrhoea [Unknown]
  - Rash pruritic [Unknown]

NARRATIVE: CASE EVENT DATE: 20100320
